FAERS Safety Report 12347298 (Version 1)
Quarter: 2016Q2

REPORT INFORMATION
  Report Type: Spontaneous
  Country: US (occurrence: None)
  Receive Date: 20160506
  Receipt Date: 20160506
  Transmission Date: 20160815
  Serious: No
  Sender: FDA-Public Use
  Company Number: None

PATIENT
  Age: 61 Year
  Sex: Female

DRUGS (1)
  1. LINEZOLID 600MG [Suspect]
     Active Substance: LINEZOLID
     Indication: STAPHYLOCOCCAL INFECTION
     Route: 048
     Dates: start: 20160402, end: 20160408

REACTIONS (4)
  - Oral discomfort [None]
  - Stomatitis [None]
  - Visual impairment [None]
  - Nausea [None]

NARRATIVE: CASE EVENT DATE: 20160404
